FAERS Safety Report 4450207-2 (Version None)
Quarter: 2004Q3

REPORT INFORMATION
  Report Type: 
  Country: None (occurrence: None)
  Receive Date: 20040914
  Receipt Date: 20040907
  Transmission Date: 20050211
  Serious: Yes (Hospitalization, Other)
  Sender: FDA-Public Use
  Company Number: 200410856BVD

PATIENT
  Age: 70 Year
  Sex: Male
  Weight: 65 kg

DRUGS (1)
  1. AVELOX [Suspect]
     Indication: PNEUMONIA ASPIRATION
     Dosage: NI, ONCE, INTAVENOUS
     Route: 042
     Dates: start: 20040830

REACTIONS (6)
  - BLOOD PRESSURE DECREASED [None]
  - BRADYCARDIA [None]
  - CARDIOVASCULAR DISORDER [None]
  - INFUSION RELATED REACTION [None]
  - TACHYCARDIA [None]
  - URTICARIA [None]
